FAERS Safety Report 14406738 (Version 1)
Quarter: 2018Q1

REPORT INFORMATION
  Report Type: Spontaneous
  Country: HU (occurrence: HU)
  Receive Date: 20180118
  Receipt Date: 20180118
  Transmission Date: 20180509
  Serious: Yes (Hospitalization)
  Sender: FDA-Public Use
  Company Number: HU-ABBVIE-18K-076-2228365-00

PATIENT
  Age: 54 Year
  Sex: Female
  Weight: 70 kg

DRUGS (8)
  1. COVEREX AS KOMB [Concomitant]
     Indication: HYPERTENSION
     Route: 048
     Dates: start: 2016
  2. CONCOR [Concomitant]
     Active Substance: BISOPROLOL FUMARATE
     Indication: HYPERTENSION
     Route: 048
     Dates: start: 2016
  3. DORETA [Concomitant]
     Active Substance: ACETAMINOPHEN\TRAMADOL HYDROCHLORIDE
     Indication: PAIN
     Dosage: 37,5 MG/325 MG
     Route: 048
     Dates: start: 2017
  4. HUMIRA [Suspect]
     Active Substance: ADALIMUMAB
     Indication: PSORIATIC ARTHROPATHY
     Route: 058
     Dates: start: 20161110, end: 20171207
  5. VAXIGRIP [Concomitant]
     Active Substance: INFLUENZA VIRUS VACCINE
     Indication: PROPHYLAXIS
     Dates: start: 201711, end: 201711
  6. PREVENAR [Concomitant]
     Active Substance: PNEUMOCOCCAL 7-VALENT CONJUGATE VACCINE (DIPHTHERIA CRM197 PROTEIN)
     Indication: PROPHYLAXIS
     Dates: start: 201711, end: 201711
  7. INFLUENZA VACCINE [Concomitant]
     Active Substance: INFLUENZA VIRUS VACCINE
     Indication: PROPHYLAXIS
     Dates: start: 201711, end: 201711
  8. TENOX [Concomitant]
     Indication: HYPERTENSION
     Route: 048
     Dates: start: 2016

REACTIONS (1)
  - Polyarthritis [Recovering/Resolving]

NARRATIVE: CASE EVENT DATE: 201712
